FAERS Safety Report 14411643 (Version 1)
Quarter: 2018Q1

REPORT INFORMATION
  Report Type: Spontaneous
  Country: JP (occurrence: JP)
  Receive Date: 20180119
  Receipt Date: 20180119
  Transmission Date: 20180509
  Serious: Yes (Death, Hospitalization, Other)
  Sender: FDA-Public Use
  Company Number: JP-BAYER-2017-126310

PATIENT
  Age: 73 Year
  Sex: Male

DRUGS (1)
  1. XOFIGO [Suspect]
     Active Substance: RADIUM RA-223 DICHLORIDE
     Indication: HORMONE-REFRACTORY PROSTATE CANCER
     Dosage: UNK
     Route: 042
     Dates: start: 201708

REACTIONS (7)
  - Bone marrow failure [None]
  - Bone marrow infiltration [None]
  - Platelet count decreased [None]
  - Anaemia [None]
  - Malaise [None]
  - White blood cell count decreased [None]
  - Disseminated intravascular coagulation [None]

NARRATIVE: CASE EVENT DATE: 2017
